FAERS Safety Report 8371316 (Version 2)
Quarter: 2013Q1

REPORT INFORMATION
  Report Type: Report from Study
  Country: US (occurrence: US)
  Receive Date: 20120129
  Receipt Date: 20130129
  Transmission Date: 20140127
  Serious: Yes (Hospitalization, Other)
  Sender: FDA-Public Use
  Company Number: US-ABBOTT-11P-163-0881660-00

PATIENT
  Sex: Male
  Weight: 110.32 kg

DRUGS (9)
  1. HUMIRA 40 MG/ 0.8 ML PRE-FILLED SYRINGE [Suspect]
     Indication: ANKYLOSING SPONDYLITIS
     Dates: start: 2006, end: 20111011
  2. HUMIRA 40 MG/ 0.8 ML PRE-FILLED SYRINGE [Suspect]
     Indication: CROHN^S DISEASE
  3. VICODIN [Concomitant]
     Indication: PAIN
  4. METAXALONE [Concomitant]
     Indication: PAIN
  5. ODANSETRON [Concomitant]
     Indication: NAUSEA
     Dates: start: 20111205
  6. LEVETIRACETAM [Concomitant]
     Indication: CONVULSION PROPHYLAXIS
  7. PANTOPRAZOLE [Concomitant]
     Indication: GASTROOESOPHAGEAL REFLUX DISEASE
  8. ATENOLOL [Concomitant]
     Indication: HYPERTENSION
  9. FLUOXETINE [Concomitant]
     Indication: DEPRESSION

REACTIONS (2)
  - Glioblastoma [Unknown]
  - Fatigue [Recovered/Resolved]
